FAERS Safety Report 14487462 (Version 2)
Quarter: 2018Q1

REPORT INFORMATION
  Report Type: Report from Study
  Country: LB (occurrence: LB)
  Receive Date: 20180205
  Receipt Date: 20180306
  Transmission Date: 20180509
  Serious: Yes (Death)
  Sender: FDA-Public Use
  Company Number: PHHY2018LB017218

PATIENT
  Sex: Female

DRUGS (1)
  1. EXJADE [Suspect]
     Active Substance: DEFERASIROX
     Indication: SERUM FERRITIN INCREASED
     Dosage: 250 MG, QD
     Route: 048
     Dates: start: 201711, end: 201712

REACTIONS (4)
  - Red blood cell count decreased [Unknown]
  - Leukocytosis [Unknown]
  - Acute myeloid leukaemia [Fatal]
  - Liver disorder [Unknown]
